FAERS Safety Report 13698688 (Version 1)
Quarter: 2017Q2

REPORT INFORMATION
  Report Type: Spontaneous
  Country: US (occurrence: US)
  Receive Date: 20170627
  Receipt Date: 20170627
  Transmission Date: 20170830
  Serious: No
  Sender: FDA-Public Use
  Company Number: None

PATIENT
  Age: 45 Year
  Sex: Female
  Weight: 53.1 kg

DRUGS (8)
  1. COSENTYX [Concomitant]
     Active Substance: SECUKINUMAB
  2. ZINC/CLOBETASOL [Concomitant]
  3. VITAMIN D3 [Concomitant]
     Active Substance: CHOLECALCIFEROL
  4. PHILLIPS PROBIOTICS [Concomitant]
  5. NATURE MADE VIT B12 [Concomitant]
  6. NATURE MADE K+ [Concomitant]
  7. HUMIRA [Suspect]
     Active Substance: ADALIMUMAB
     Indication: PSORIATIC ARTHROPATHY
     Dates: end: 20170516
  8. ENSTILAR FOAM [Concomitant]

REACTIONS (2)
  - Lactose intolerance [None]
  - Influenza [None]
